FAERS Safety Report 13188247 (Version 2)
Quarter: 2017Q1

REPORT INFORMATION
  Report Type: Spontaneous
  Country: ES (occurrence: ES)
  Receive Date: 20170206
  Receipt Date: 20170224
  Transmission Date: 20170428
  Serious: Yes (Other)
  Sender: FDA-Public Use
  Company Number: ES-IPSEN BIOPHARMACEUTICALS, INC.-2017-00817

PATIENT
  Age: 54 Year
  Sex: Female
  Weight: 64 kg

DRUGS (6)
  1. LEVEMIR [Concomitant]
     Active Substance: INSULIN DETEMIR
     Dates: start: 20090304
  2. EZETIMIBE. [Concomitant]
     Active Substance: EZETIMIBE
     Dates: start: 20121018
  3. LEVOTHYROXINE. [Concomitant]
     Active Substance: LEVOTHYROXINE
     Dates: start: 20080822
  4. SOMATULINE AUTOGEL 120MG [Suspect]
     Active Substance: LANREOTIDE ACETATE
     Indication: NEUROENDOCRINE TUMOUR
     Dosage: 120 MG
     Route: 058
     Dates: start: 20100617
  5. NOVORAPID [Concomitant]
     Active Substance: INSULIN ASPART
     Dates: start: 20090304
  6. AMPLODIPINE [Concomitant]
     Dates: start: 20120110

REACTIONS (1)
  - Dermoid cyst [Not Recovered/Not Resolved]

NARRATIVE: CASE EVENT DATE: 20140505
